FAERS Safety Report 8778836 (Version 2)
Quarter: 2012Q4

REPORT INFORMATION
  Report Type: 
  Country: AU (occurrence: AU)
  Receive Date: 20120912
  Receipt Date: 20121001
  Transmission Date: 20130627
  Serious: Yes (Hospitalization, Other)
  Sender: FDA-Public Use
  Company Number: PHHY2012AU076762

PATIENT
  Age: 70 Year
  Sex: Female

DRUGS (6)
  1. KARVEZIDE [Concomitant]
     Dosage: 1 DF, daily
  2. LIPITOR [Concomitant]
     Dosage: 40 mg, daily
  3. METFORMIN [Concomitant]
     Dosage: 500 mg, daily
  4. NEXIUM [Concomitant]
     Dosage: 20 mg, daily
  5. ANALGESICS [Concomitant]
  6. GILENYA [Suspect]
     Indication: MULTIPLE SCLEROSIS
     Dosage: 0.5 mg, QD
     Route: 048
     Dates: start: 20120725, end: 20120823

REACTIONS (10)
  - Acute left ventricular failure [Recovered/Resolved]
  - Diastolic dysfunction [Unknown]
  - Cardiac murmur [Unknown]
  - Rales [Unknown]
  - Pulmonary oedema [Unknown]
  - Dyspnoea [Recovering/Resolving]
  - Pleural effusion [Unknown]
  - Chest discomfort [Unknown]
  - Cardiac disorder [Unknown]
  - Orthopnoea [Unknown]
